FAERS Safety Report 9672401 (Version 1)
Quarter: 2013Q4

REPORT INFORMATION
  Report Type: Spontaneous
  Country: BE (occurrence: None)
  Receive Date: 20131105
  Receipt Date: 20131105
  Transmission Date: 20140711
  Serious: Yes (Hospitalization)
  Sender: FDA-Public Use
  Company Number: DSM-2013-01007

PATIENT
  Age: 8 Decade
  Sex: Female

DRUGS (1)
  1. AMLODIPINE BESILATE W/ OLMESARTAN MEDOXOMIL [Suspect]
     Indication: HYPERTENSION
     Route: 048
     Dates: start: 2011, end: 201307

REACTIONS (4)
  - Diarrhoea [None]
  - Weight decreased [None]
  - Colitis microscopic [None]
  - Microvillous inclusion disease [None]
